FAERS Safety Report 5227862-2 (Version None)
Quarter: 2007Q1

REPORT INFORMATION
  Report Type: 
  Country: None (occurrence: None)
  Receive Date: 20070202
  Receipt Date: 20070126
  Transmission Date: 20070707
  Serious: Yes (Hospitalization)
  Sender: FDA-Public Use
  Company Number: DE-ABBOTT-07P-062-0354932-00

PATIENT
  Sex: Male

DRUGS (3)
  1. ERGENYL TABLETS [Suspect]
     Indication: PARTIAL SEIZURES
     Route: 048
     Dates: start: 20001001, end: 20040719
  2. ERGENYL TABLETS [Suspect]
     Indication: CYTOMEGALOVIRUS INFECTION
  3. VIGABATRIN [Concomitant]
     Indication: EPILEPSY
     Route: 048
     Dates: start: 20010801

REACTIONS (6)
  - CONTUSION [None]
  - FACTOR XIII DEFICIENCY [None]
  - HAEMATOMA [None]
  - PETECHIAE [None]
  - PNEUMONIA [None]
  - THROMBOCYTOPENIA [None]
